FAERS Safety Report 10554980 (Version 1)
Quarter: 2014Q4

REPORT INFORMATION
  Report Type: Spontaneous
  Country: FR (occurrence: FR)
  Receive Date: 20141030
  Receipt Date: 20141030
  Transmission Date: 20150529
  Serious: Yes (Hospitalization, Other)
  Sender: FDA-Public Use
  Company Number: FR-PFIZER INC-2014296141

PATIENT
  Age: 20 Year
  Sex: Female

DRUGS (2)
  1. YAZ [Suspect]
     Active Substance: DROSPIRENONE\ETHINYL ESTRADIOL
     Indication: ORAL CONTRACEPTION
     Dosage: (0.02MG/3MG), UNK
     Route: 048
     Dates: start: 201402, end: 201408
  2. TRINORDIOL [Suspect]
     Active Substance: ETHINYL ESTRADIOL\LEVONORGESTREL
     Indication: ORAL CONTRACEPTION
     Dosage: (50-75-125UG, 30-40-30UG), UNK
     Route: 048
     Dates: start: 2011, end: 201402

REACTIONS (2)
  - Portal vein thrombosis [Recovered/Resolved]
  - Myeloproliferative disorder [Unknown]

NARRATIVE: CASE EVENT DATE: 20140828
